FAERS Safety Report 6250383-5 (Version None)
Quarter: 2009Q2

REPORT INFORMATION
  Report Type: 
  Country: None (occurrence: None)
  Receive Date: 20090624
  Receipt Date: 20090615
  Transmission Date: 20091009
  Serious: Yes (Hospitalization)
  Sender: FDA-Public Use
  Company Number: ADR4882009

PATIENT
  Age: 58 Year
  Sex: Male

DRUGS (5)
  1. CIPROFLOXACIN [Suspect]
     Dosage: 200 MG TWICE DAILY INTRAVENOUSLY
     Route: 042
  2. CLOZAPINE [Concomitant]
  3. VALPROIC ACID [Concomitant]
  4. HYDROCHLOROTHIAZIDE [Concomitant]
  5. CLONAZEPAM [Concomitant]

REACTIONS (3)
  - ALANINE AMINOTRANSFERASE INCREASED [None]
  - ASPARTATE AMINOTRANSFERASE INCREASED [None]
  - DRUG INTERACTION [None]
